FAERS Safety Report 16938727 (Version 1)
Quarter: 2019Q4

REPORT INFORMATION
  Report Type: Report from Study
  Country: AR (occurrence: AR)
  Receive Date: 20191020
  Receipt Date: 20191020
  Transmission Date: 20200122
  Serious: Yes (Other)
  Sender: FDA-Public Use
  Company Number: PHHY2019AR226246

PATIENT
  Age: 44 Year
  Sex: Male

DRUGS (1)
  1. GILENYA [Suspect]
     Active Substance: FINGOLIMOD HYDROCHLORIDE
     Indication: MULTIPLE SCLEROSIS
     Dosage: 0.5 MG, QD
     Route: 065
     Dates: start: 201909

REACTIONS (2)
  - Decreased immune responsiveness [Not Recovered/Not Resolved]
  - Secondary progressive multiple sclerosis [Unknown]

NARRATIVE: CASE EVENT DATE: 201909
